FAERS Safety Report 13836064 (Version 1)
Quarter: 2017Q3

REPORT INFORMATION
  Report Type: Spontaneous
  Country: US (occurrence: US)
  Receive Date: 20170804
  Receipt Date: 20170804
  Transmission Date: 20171127
  Serious: Yes (Other)
  Sender: FDA-Public Use
  Company Number: US-ROCHE-1015584

PATIENT
  Sex: Female
  Weight: 58.57 kg

DRUGS (10)
  1. BONIVA [Suspect]
     Active Substance: IBANDRONATE SODIUM
     Route: 042
     Dates: start: 20110927
  2. BONIVA [Suspect]
     Active Substance: IBANDRONATE SODIUM
     Indication: OSTEOPOROSIS
     Dosage: INFUSION VIA BUTTERFLY CATHETER OVER 15-30 SECONDS
     Route: 042
  3. RANITIDINE HCL [Concomitant]
     Active Substance: RANITIDINE HYDROCHLORIDE
     Route: 065
  4. SIMVASTATIN. [Concomitant]
     Active Substance: SIMVASTATIN
     Dosage: 1 TABLET DAILY AT BEDTIME
     Route: 065
  5. BECONASE AQ [Concomitant]
     Active Substance: BECLOMETHASONE DIPROPIONATE MONOHYDRATE
     Dosage: 2 SPRAY TWICE DAILY IN EACH NOSTRIL
     Route: 065
  6. GLUCOSAMINE CHONDROITIN COMPLEX [Concomitant]
     Active Substance: CHONDROITIN SULFATE (BOVINE)\GLUCOSAMINE HYDROCHLORIDE
     Route: 065
  7. LIDODERM [Concomitant]
     Active Substance: LIDOCAINE
     Dosage: TO APPLY UPTO 3 PATCHES TO AFFECTED AREAS AS NEEDED
     Route: 065
  8. ACETAMINOPHEN/TRAMADOL HYDROCHLORIDE [Concomitant]
     Active Substance: ACETAMINOPHEN\TRAMADOL HYDROCHLORIDE
     Dosage: 37.5-325 MG ORAL TABLET; TO TAKE 1 TABLET EVERY 6 HOURS AS NEEDED
     Route: 065
  9. VAGIFEM [Concomitant]
     Active Substance: ESTRADIOL
     Route: 067
  10. ZYRTEC [Concomitant]
     Active Substance: CETIRIZINE HYDROCHLORIDE
     Route: 065

REACTIONS (2)
  - Infusion site pain [Recovering/Resolving]
  - Infusion site swelling [Recovering/Resolving]
